FAERS Safety Report 21132057 (Version 1)
Quarter: 2022Q3

REPORT INFORMATION
  Report Type: Spontaneous
  Country: CN (occurrence: CN)
  Receive Date: 20220726
  Receipt Date: 20220726
  Transmission Date: 20221027
  Serious: Yes (Other)
  Sender: FDA-Public Use
  Company Number: CN-009507513-2207CHN007233

PATIENT
  Age: 65 Year
  Sex: Male
  Weight: 70 kg

DRUGS (6)
  1. KEYTRUDA [Suspect]
     Active Substance: PEMBROLIZUMAB
     Indication: Oesophageal carcinoma
     Dosage: 200 MG, DAY 1, EVERY 3 WEEKS (Q3W)
     Route: 041
     Dates: start: 20220618, end: 20220618
  2. CISPLATIN [Suspect]
     Active Substance: CISPLATIN
     Indication: Oesophageal carcinoma
     Dosage: 40MG, DAY 1 - DAY 3, EVERY 3 WEEKS (Q3W)
     Route: 041
     Dates: start: 20220618, end: 20220620
  3. FLUOROURACIL [Suspect]
     Active Substance: FLUOROURACIL
     Indication: Oesophageal carcinoma
     Dosage: 1.2 G, DAY 1 - DAY 5, EVERY 3 WEEKS (Q3W)
     Route: 041
     Dates: start: 20220618, end: 20220622
  4. SODIUM CHLORIDE [Concomitant]
     Active Substance: SODIUM CHLORIDE
     Indication: Oesophageal carcinoma
     Dosage: 500 ML, DAY (D) 1, EVERY 3 WEEKS (Q3W)
     Route: 041
     Dates: start: 20220618, end: 20220618
  5. SODIUM CHLORIDE [Concomitant]
     Active Substance: SODIUM CHLORIDE
     Dosage: 100 ML, D 1-3, Q3W
     Route: 041
     Dates: start: 20220618, end: 20220620
  6. SODIUM CHLORIDE [Concomitant]
     Active Substance: SODIUM CHLORIDE
     Dosage: 100 ML, D 1-5, Q3W
     Route: 041
     Dates: start: 20220618, end: 20220622

REACTIONS (4)
  - Myelosuppression [Unknown]
  - Infection [Unknown]
  - Decreased appetite [Recovering/Resolving]
  - Asthenia [Recovering/Resolving]

NARRATIVE: CASE EVENT DATE: 20220622
